FAERS Safety Report 6542904-X (Version None)
Quarter: 2010Q1

REPORT INFORMATION
  Report Type: 
  Country: None (occurrence: None)
  Receive Date: 20100114
  Receipt Date: 20100106
  Transmission Date: 20100710
  Serious: Yes (Hospitalization)
  Sender: FDA-Public Use
  Company Number: WAES 1001USA00446

PATIENT
  Age: 50 Year
  Sex: Male
  Weight: 68.9467 kg

DRUGS (2)
  1. CAP VORINOSTAT [Suspect]
     Indication: B-CELL LYMPHOMA
     Dosage: 200 MG/BID/PO
     Route: 048
     Dates: start: 20091201, end: 20091215
  2. CAP VORINOSTAT [Suspect]
     Indication: B-CELL LYMPHOMA
     Dosage: 200 MG/BID/PO
     Route: 048
     Dates: start: 20091222, end: 20100105

REACTIONS (2)
  - DIPLOPIA [None]
  - VITH NERVE PARALYSIS [None]
